FAERS Safety Report 6258445-3 (Version None)
Quarter: 2009Q3

REPORT INFORMATION
  Report Type: 
  Country: None (occurrence: None)
  Receive Date: 20090702
  Receipt Date: 20090702
  Transmission Date: 20100115
  Serious: Yes (Hospitalization)
  Sender: FDA-Public Use
  Company Number: None

PATIENT
  Age: 47 Year
  Sex: Female
  Weight: 95.2554 kg

DRUGS (1)
  1. INVANZ [Suspect]
     Indication: INFECTION
     Dosage: I GR I A DAY
     Dates: start: 20090623, end: 20090627

REACTIONS (2)
  - BALANCE DISORDER [None]
  - CONVULSION [None]
